FAERS Safety Report 7271966-X (Version None)
Quarter: 2011Q1

REPORT INFORMATION
  Report Type: 
  Country: None (occurrence: None)
  Receive Date: 20110126
  Receipt Date: 20110114
  Transmission Date: 20110831
  Serious: Yes (Other)
  Sender: FDA-Public Use
  Company Number: GER/UKI/11/0017150

PATIENT
  Age: 61 Year
  Sex: Male

DRUGS (1)
  1. OMEPRAZOLE [Suspect]
     Indication: GASTROOESOPHAGEAL REFLUX DISEASE
     Dosage: 60 MG, 1 IN 1 D,

REACTIONS (6)
  - HYPOMAGNESAEMIA [None]
  - PARAESTHESIA [None]
  - DIARRHOEA [None]
  - HYPOCALCAEMIA [None]
  - MUSCLE SPASMS [None]
  - LOSS OF CONSCIOUSNESS [None]
